FAERS Safety Report 5848246-X (Version None)
Quarter: 2008Q3

REPORT INFORMATION
  Report Type: 
  Country: None (occurrence: None)
  Receive Date: 20080818
  Receipt Date: 20080811
  Transmission Date: 20090109
  Serious: Yes (Hospitalization)
  Sender: FDA-Public Use
  Company Number: US-BRISTOL-MYERS SQUIBB COMPANY-14237200

PATIENT
  Age: 62 Year
  Sex: Female
  Weight: 61 kg

DRUGS (6)
  1. ABILIFY [Suspect]
     Indication: BIPOLAR DISORDER
     Dates: start: 20070701, end: 20071101
  2. TRILEPTAL [Concomitant]
  3. EFFEXOR XR [Concomitant]
  4. METFORMIN HCL [Concomitant]
  5. LOTENSIN [Concomitant]
  6. VITAMIN [Concomitant]

REACTIONS (3)
  - STRESS [None]
  - SUICIDAL IDEATION [None]
  - THEFT [None]
